FAERS Safety Report 8483095-8 (Version None)
Quarter: 2012Q3

REPORT INFORMATION
  Report Type: 
  Country: None (occurrence: None)
  Receive Date: 20120702
  Receipt Date: 20120622
  Transmission Date: 20120928
  Serious: No
  Sender: FDA-Public Use
  Company Number: US-B.I. PHARMACEUTICALS,INC./RIDGEFIELD-2012-BP-14361BP

PATIENT
  Sex: Male

DRUGS (1)
  1. COMBIVENT [Suspect]

REACTIONS (1)
  - DYSURIA [None]
